FAERS Safety Report 9029967 (Version 2)
Quarter: 2013Q2

REPORT INFORMATION
  Report Type: Spontaneous
  Country: DE (occurrence: DE)
  Receive Date: 20130125
  Receipt Date: 20130412
  Transmission Date: 20140414
  Serious: Yes (Hospitalization)
  Sender: FDA-Public Use
  Company Number: DE-BIOGENIDEC-2013BI005897

PATIENT
  Age: 22 Year
  Sex: Female

DRUGS (2)
  1. AVONEX [Suspect]
     Indication: MULTIPLE SCLEROSIS
     Route: 030
     Dates: start: 20120928, end: 20121123
  2. L-THYROXINE [Concomitant]
     Indication: AUTOIMMUNE THYROIDITIS

REACTIONS (2)
  - Drug-induced liver injury [Recovered/Resolved]
  - Influenza like illness [Recovered/Resolved]
